FAERS Safety Report 20046677 (Version 6)
Quarter: 2022Q3

REPORT INFORMATION
  Report Type: Report from Study
  Country: US (occurrence: US)
  Receive Date: 20211109
  Receipt Date: 20220930
  Transmission Date: 20221027
  Serious: No
  Sender: FDA-Public Use
  Company Number: US-NOVARTISTESTPH-NVSC2021US251959

PATIENT
  Sex: Male

DRUGS (2)
  1. ENTRESTO [Suspect]
     Active Substance: SACUBITRIL\VALSARTAN
     Indication: Product used for unknown indication
     Dosage: 49 MG, BID
     Route: 048
  2. ENTRESTO [Suspect]
     Active Substance: SACUBITRIL\VALSARTAN
     Dosage: 49 MG, QD
     Route: 048

REACTIONS (5)
  - Alopecia [Unknown]
  - Varicose vein [Unknown]
  - Sleep disorder [Recovering/Resolving]
  - Cough [Recovered/Resolved]
  - Inappropriate schedule of product administration [Not Recovered/Not Resolved]
